FAERS Safety Report 10802597 (Version 2)
Quarter: 2018Q4

REPORT INFORMATION
  Report Type: Spontaneous
  Country: US (occurrence: US)
  Receive Date: 20150217
  Receipt Date: 20181212
  Transmission Date: 20190204
  Serious: No
  Sender: FDA-Public Use
  Company Number: US-BAYER-2015-024132

PATIENT
  Age: 71 Year
  Sex: Female

DRUGS (6)
  1. ESTRADIOL. [Suspect]
     Active Substance: ESTRADIOL
     Dosage: UNK
     Route: 062
     Dates: start: 201805, end: 2018
  2. CLIMARA [Suspect]
     Active Substance: ESTRADIOL
     Dosage: UNK
     Route: 062
     Dates: end: 201805
  3. CLIMARA [Concomitant]
     Active Substance: ESTRADIOL
     Dosage: UNK
     Route: 062
     Dates: start: 2015
  4. CLIMARA [Suspect]
     Active Substance: ESTRADIOL
     Dosage: UNK
     Route: 062
     Dates: start: 201403, end: 201502
  5. CLIMARA [Suspect]
     Active Substance: ESTRADIOL
     Dosage: UNK
     Route: 062
     Dates: start: 201808
  6. CLIMARA [Suspect]
     Active Substance: ESTRADIOL
     Dosage: UNK
     Route: 062
     Dates: start: 2009, end: 201401

REACTIONS (4)
  - Blood pressure systolic increased [Recovered/Resolved]
  - Intentional product use issue [None]
  - Eye disorder [None]
  - Withdrawal syndrome [None]

NARRATIVE: CASE EVENT DATE: 201401
